FAERS Safety Report 23371883 (Version 1)
Quarter: 2024Q1

REPORT INFORMATION
  Report Type: Spontaneous
  Country: US (occurrence: None)
  Receive Date: 20240105
  Receipt Date: 20240105
  Transmission Date: 20240410
  Serious: No
  Sender: FDA-Public Use
  Company Number: None

PATIENT

DRUGS (2)
  1. SPIRONOLACTONE [Suspect]
     Active Substance: SPIRONOLACTONE
  2. POTASSIUM CHLORIDE [Suspect]
     Active Substance: POTASSIUM CHLORIDE

REACTIONS (7)
  - Product prescribing issue [None]
  - Drug interaction [None]
  - Cardiac arrest [None]
  - Blood potassium increased [None]
  - Blood creatinine increased [None]
  - Product communication issue [None]
  - Drug monitoring procedure not performed [None]
